FAERS Safety Report 8476440-0 (Version None)
Quarter: 2012Q2

REPORT INFORMATION
  Report Type: 
  Country: None (occurrence: None)
  Receive Date: 20120628
  Receipt Date: 20120619
  Transmission Date: 20120825
  Serious: No
  Sender: FDA-Public Use
  Company Number: US-ASTRAZENECA-2012SE38503

PATIENT
  Age: 40 Year
  Sex: Female

DRUGS (4)
  1. SEROQUEL XR [Suspect]
     Indication: AGORAPHOBIA
     Route: 048
  2. SEROQUEL XR [Suspect]
     Indication: BIPOLAR DISORDER
     Route: 048
  3. SEROQUEL XR [Suspect]
     Indication: BIPOLAR I DISORDER
     Route: 048
  4. SEROQUEL XR [Suspect]
     Indication: SUICIDE ATTEMPT
     Route: 048

REACTIONS (8)
  - ADVERSE EVENT [None]
  - OFF LABEL USE [None]
  - BRONCHITIS [None]
  - AGGRESSION [None]
  - DRUG DOSE OMISSION [None]
  - INSOMNIA [None]
  - TREMOR [None]
  - MALAISE [None]
